FAERS Safety Report 7988247-9 (Version None)
Quarter: 2011Q4

REPORT INFORMATION
  Report Type: 
  Country: None (occurrence: None)
  Receive Date: 20111216
  Receipt Date: 20110714
  Transmission Date: 20120403
  Serious: No
  Sender: FDA-Public Use
  Company Number: US-ABBOTT-11P-163-0839423-00

PATIENT
  Age: 57 Year
  Sex: Female
  Weight: 90.8 kg

DRUGS (1)
  1. PROMETRIUM [Suspect]
     Indication: MENSTRUAL DISORDER
     Dates: start: 20110701, end: 20110711

REACTIONS (2)
  - ANXIETY [None]
  - INSOMNIA [None]
